FAERS Safety Report 17277867 (Version 2)
Quarter: 2020Q1

REPORT INFORMATION
  Report Type: Spontaneous
  Country: US (occurrence: US)
  Receive Date: 20200116
  Receipt Date: 20200122
  Transmission Date: 20200409
  Serious: Yes (Hospitalization, Other)
  Sender: FDA-Public Use
  Company Number: US-PFIZER INC-2020013050

PATIENT
  Age: 43 Year
  Sex: Male

DRUGS (5)
  1. LEVETIRACETAM. [Concomitant]
     Active Substance: LEVETIRACETAM
     Indication: METABOLIC ACIDOSIS
     Dosage: UNK
  2. PROPOFOL. [Suspect]
     Active Substance: PROPOFOL
     Dosage: UP TO 80 MCG/KG/MIN
  3. PROPOFOL. [Suspect]
     Active Substance: PROPOFOL
     Indication: SEDATION
     Dosage: 20 UG/KG, CYCLIC (1 MINUTE)
  4. PROPOFOL. [Suspect]
     Active Substance: PROPOFOL
     Dosage: 60 UG/KG, CYCLIC (MINUTE)
  5. LORAZEPAM. [Concomitant]
     Active Substance: LORAZEPAM
     Indication: METABOLIC ACIDOSIS
     Dosage: UNK

REACTIONS (1)
  - Propofol infusion syndrome [Recovering/Resolving]
